FAERS Safety Report 4861089-9 (Version None)
Quarter: 2005Q4

REPORT INFORMATION
  Report Type: 
  Country: None (occurrence: None)
  Receive Date: 20051220
  Receipt Date: 20051206
  Transmission Date: 20060501
  Serious: Yes (Death)
  Sender: FDA-Public Use
  Company Number: JP-JPN-A20052992

PATIENT
  Age: 31 Year
  Sex: Male
  Weight: 89 kg

DRUGS (10)
  1. ZEFIX [Suspect]
     Indication: HEPATITIS B
     Route: 048
     Dates: start: 20051107, end: 20051204
  2. LACTULOSE [Concomitant]
     Dosage: 60ML PER DAY
     Route: 048
     Dates: start: 20051107
  3. ALLOID G [Concomitant]
     Dosage: 30U PER DAY
     Route: 048
     Dates: start: 20051112
  4. NEO-MINOPHAGEN-C [Concomitant]
     Indication: HEPATITIS B
     Route: 042
     Dates: start: 20051107
  5. NEUART [Concomitant]
     Dosage: 15Z PER DAY
     Route: 042
     Dates: start: 20051107, end: 20051109
  6. SOLU-MEDROL [Concomitant]
     Route: 042
     Dates: start: 20051107, end: 20051115
  7. PREDONINE [Concomitant]
     Route: 042
     Dates: start: 20051117, end: 20051120
  8. CEFAZOLIN [Concomitant]
     Dosage: 2G PER DAY
     Route: 042
     Dates: start: 20051122, end: 20051128
  9. LASIX [Concomitant]
     Indication: ASCITES
     Dosage: 20MG PER DAY
     Route: 042
     Dates: start: 20051115, end: 20051128
  10. ALBUMIN (HUMAN) [Concomitant]
     Indication: ASCITES
     Dosage: 2U PER DAY
     Route: 042
     Dates: start: 20051115, end: 20051202

REACTIONS (8)
  - AMMONIA INCREASED [None]
  - ASCITES [None]
  - BLOOD CREATININE INCREASED [None]
  - BLOOD UREA INCREASED [None]
  - GASTRIC ULCER HAEMORRHAGE [None]
  - HAEMATEMESIS [None]
  - PYREXIA [None]
  - RENAL FAILURE ACUTE [None]
